FAERS Safety Report 20809624 (Version 1)
Quarter: 2022Q2

REPORT INFORMATION
  Report Type: Spontaneous
  Country: US (occurrence: None)
  Receive Date: 20220510
  Receipt Date: 20220510
  Transmission Date: 20220721
  Serious: Yes (Hospitalization)
  Sender: FDA-Public Use
  Company Number: None

PATIENT
  Sex: Male

DRUGS (3)
  1. MYCOPHENOLIC ACID [Suspect]
     Active Substance: MYCOPHENOLIC ACID
     Indication: Organ transplant
     Dosage: TAKE 2 TABLETS BY MOUTH TWICE DAILY?
     Route: 048
     Dates: start: 20180303
  2. MYCOPHENOLIC ACID [Suspect]
     Active Substance: MYCOPHENOLIC ACID
     Indication: Transplant
  3. GENGRAF [Concomitant]
     Active Substance: CYCLOSPORINE

REACTIONS (1)
  - Hospitalisation [None]
